FAERS Safety Report 4758460-2 (Version None)
Quarter: 2005Q3

REPORT INFORMATION
  Report Type: 
  Country: None (occurrence: None)
  Receive Date: 20050829
  Receipt Date: 20050823
  Transmission Date: 20060218
  Serious: Yes (Hospitalization, Other)
  Sender: FDA-Public Use
  Company Number: 200512628GDS

PATIENT
  Age: 56 Year
  Sex: Female

DRUGS (9)
  1. MOXIFLOXACIN HCL [Suspect]
     Indication: SINUSITIS
     Dosage: 400 MG, QD, ORAL
     Route: 048
     Dates: start: 20040201
  2. CARVEDILOL [Concomitant]
  3. RAMIPRIL [Concomitant]
  4. ASPIRIN [Concomitant]
  5. PANTOPRAZOLE [Concomitant]
  6. LEVOTHYROXINE SODIUM [Concomitant]
  7. LIOTHYRONINE SODIUM [Concomitant]
  8. SODIUM HYDROGEN CARBONATE [Concomitant]
  9. TRIAZOLAM [Concomitant]

REACTIONS (16)
  - ALANINE AMINOTRANSFERASE INCREASED [None]
  - ASPARTATE AMINOTRANSFERASE INCREASED [None]
  - BLOOD ALKALINE PHOSPHATASE INCREASED [None]
  - BLOOD CREATININE INCREASED [None]
  - BLOOD UREA INCREASED [None]
  - C-REACTIVE PROTEIN INCREASED [None]
  - COMA [None]
  - GAMMA-GLUTAMYLTRANSFERASE INCREASED [None]
  - HEADACHE [None]
  - HYPOAESTHESIA [None]
  - HYPOAESTHESIA ORAL [None]
  - PNEUMONIA ASPIRATION [None]
  - PO2 DECREASED [None]
  - RALES [None]
  - SOMNOLENCE [None]
  - SPEECH DISORDER [None]
